FAERS Safety Report 9956828 (Version 1)
Quarter: 2014Q1

REPORT INFORMATION
  Report Type: Spontaneous
  Country: US (occurrence: US)
  Receive Date: 20140304
  Receipt Date: 20140304
  Transmission Date: 20141002
  Serious: No
  Sender: FDA-Public Use
  Company Number: US-ABBVIE-13P-163-1097170-00

PATIENT
  Age: 54 Year
  Sex: Male
  Weight: 82.63 kg

DRUGS (4)
  1. HUMIRA [Suspect]
     Indication: PSORIASIS
     Route: 058
     Dates: start: 20130206, end: 20130206
  2. HUMIRA [Suspect]
     Route: 058
     Dates: start: 20130213
  3. UNKNOWN OINTMENT [Concomitant]
     Indication: PSORIASIS
  4. UNKNOWN NASAL SPRAY [Concomitant]
     Indication: SEASONAL ALLERGY
     Dosage: PRN

REACTIONS (3)
  - Nerve injury [Not Recovered/Not Resolved]
  - Hypoaesthesia [Not Recovered/Not Resolved]
  - Feeling hot [Not Recovered/Not Resolved]
